FAERS Safety Report 19977325 (Version 1)
Quarter: 2021Q4

REPORT INFORMATION
  Report Type: Spontaneous
  Country: US (occurrence: US)
  Receive Date: 20211020
  Receipt Date: 20211020
  Transmission Date: 20220304
  Serious: No
  Sender: FDA-Public Use
  Company Number: US-ALLERGAN-2111212US

PATIENT
  Age: 63 Year
  Sex: Female

DRUGS (2)
  1. LINZESS [Suspect]
     Active Substance: LINACLOTIDE
     Indication: Irritable bowel syndrome
     Dosage: 72 ?G, QD
     Route: 048
     Dates: start: 202102, end: 202104
  2. BYSTOLIC [Concomitant]
     Active Substance: NEBIVOLOL HYDROCHLORIDE
     Indication: Hypertension
     Dosage: 2.5 MG, QD
     Route: 048

REACTIONS (5)
  - Blood pressure increased [Recovered/Resolved]
  - Incorrect dose administered [Unknown]
  - Diarrhoea [Recovered/Resolved]
  - Constipation [Unknown]
  - Abdominal pain upper [Unknown]
